FAERS Safety Report 10954274 (Version 1)
Quarter: 2015Q1

REPORT INFORMATION
  Report Type: Spontaneous
  Country: US (occurrence: US)
  Receive Date: 20150325
  Receipt Date: 20150325
  Transmission Date: 20150721
  Serious: Yes (Other)
  Sender: FDA-Public Use
  Company Number: US-ACTAVIS-2015-05971

PATIENT
  Age: 16 Year
  Sex: Female

DRUGS (8)
  1. LEVETIRACETAM ER (ACTAVIS LABORATORIES FL) [Suspect]
     Active Substance: LEVETIRACETAM
     Dosage: 7000 MG, DAILY, 4500 IN THE MORNING; 2500 IN THE EVENING
     Route: 065
  2. LEVETIRACETAM ER (ACTAVIS LABORATORIES FL) [Suspect]
     Active Substance: LEVETIRACETAM
     Indication: EPILEPSY
     Dosage: 2000 MG, DAILY
     Route: 065
  3. LEVETIRACETAM ER (ACTAVIS LABORATORIES FL) [Suspect]
     Active Substance: LEVETIRACETAM
     Dosage: 2500 MG, BID
     Route: 065
  4. LEVETIRACETAM ER (ACTAVIS LABORATORIES FL) [Suspect]
     Active Substance: LEVETIRACETAM
     Dosage: 3500 MG, DAILY
     Route: 065
  5. LEVETIRACETAM ER (ACTAVIS LABORATORIES FL) [Suspect]
     Active Substance: LEVETIRACETAM
     Dosage: 4500 MG, DAILY
     Route: 065
  6. LEVETIRACETAM ER (ACTAVIS LABORATORIES FL) [Suspect]
     Active Substance: LEVETIRACETAM
     Dosage: 2500 MG, DAILY
     Route: 065
  7. LEVETIRACETAM ER (ACTAVIS LABORATORIES FL) [Suspect]
     Active Substance: LEVETIRACETAM
     Dosage: 4000 MG, DAILY
     Route: 065
  8. LEVETIRACETAM ER (ACTAVIS LABORATORIES FL) [Suspect]
     Active Substance: LEVETIRACETAM
     Dosage: 3000 MG, DAILY
     Route: 065

REACTIONS (3)
  - Seizure [Unknown]
  - Drug level fluctuating [Unknown]
  - Pregnancy [Recovered/Resolved]
